FAERS Safety Report 4617078-2 (Version None)
Quarter: 2005Q1

REPORT INFORMATION
  Report Type: 
  Country: None (occurrence: None)
  Receive Date: 20050321
  Receipt Date: 20050303
  Transmission Date: 20050727
  Serious: Yes (Death)
  Sender: FDA-Public Use
  Company Number: 10473

PATIENT
  Age: 6 Year
  Sex: Male

DRUGS (7)
  1. METHOTREXATE [Suspect]
     Dosage: 2  G/M2 PER_CYCLE; IT/IV
     Route: 037
  2. VINCRISTINE [Concomitant]
  3. ............... [Concomitant]
  4. CYCLOPHOSPHAMIDE [Concomitant]
  5. PREDNISONE [Concomitant]
  6. HYDROCORTISONE [Concomitant]
  7. LEUCOVORIN CALCIUM [Concomitant]

REACTIONS (3)
  - DIARRHOEA [None]
  - DRUG TOXICITY [None]
  - MUCOSAL INFLAMMATION [None]
